FAERS Safety Report 7830421-6 (Version None)
Quarter: 2011Q4

REPORT INFORMATION
  Report Type: 
  Country: None (occurrence: None)
  Receive Date: 20111021
  Receipt Date: 20111019
  Transmission Date: 20120403
  Serious: No
  Sender: FDA-Public Use
  Company Number: US-B.I. PHARMACEUTICALS,INC./RIDGEFIELD-2011-BP-23277BP

PATIENT
  Age: 76 Year
  Sex: Male

DRUGS (9)
  1. ZOCOR [Concomitant]
     Indication: HYPERCHOLESTEROLAEMIA
     Dosage: 20 MG
     Route: 048
  2. PRADAXA [Suspect]
     Indication: CEREBROVASCULAR ACCIDENT PROPHYLAXIS
     Dosage: 300 MG
     Route: 048
     Dates: start: 20110930
  3. AMOXICILLIN [Concomitant]
     Indication: ANTIBIOTIC THERAPY
     Route: 048
  4. METOPROLOL SU BBLOCK [Concomitant]
     Indication: HEART RATE ABNORMAL
     Route: 048
  5. CITRUCEL [Concomitant]
     Indication: UNEVALUABLE EVENT
     Route: 048
  6. WARFARIN SODIUM [Concomitant]
     Indication: ANTICOAGULANT THERAPY
     Route: 048
     Dates: end: 20110925
  7. DIGOXIN [Concomitant]
     Indication: ATRIAL FIBRILLATION
     Route: 048
  8. NEXIUM [Concomitant]
     Indication: GASTROOESOPHAGEAL REFLUX DISEASE
     Dosage: 20 MG
     Route: 048
  9. PROPAFENONE HCL [Concomitant]
     Indication: ARRHYTHMIA
     Route: 048

REACTIONS (4)
  - CHEST PAIN [None]
  - GASTRITIS [None]
  - DYSPEPSIA [None]
  - GASTROOESOPHAGEAL REFLUX DISEASE [None]
